FAERS Safety Report 8330087-5 (Version None)
Quarter: 2012Q2

REPORT INFORMATION
  Report Type: 
  Country: None (occurrence: None)
  Receive Date: 20120502
  Receipt Date: 20120427
  Transmission Date: 20120825
  Serious: Yes (Other)
  Sender: FDA-Public Use
  Company Number: US-PFIZER INC-2012105351

PATIENT
  Sex: Female

DRUGS (2)
  1. RELPAX [Suspect]
     Indication: MIGRAINE
     Dosage: UNK, AS NEEDED
     Route: 048
  2. RELPAX [Suspect]
     Dosage: 40 MG, AS NEEDED
     Route: 048

REACTIONS (5)
  - THYROID DISORDER [None]
  - PARAESTHESIA [None]
  - LYMPHADENOPATHY [None]
  - MIGRAINE [None]
  - DRUG INEFFECTIVE [None]
